FAERS Safety Report 8385371 (Version 2)
Quarter: 2015Q1

REPORT INFORMATION
  Report Type: Report from Study
  Country: US (occurrence: US)
  Receive Date: 20120202
  Receipt Date: 20150225
  Transmission Date: 20150721
  Serious: Yes (Death)
  Sender: FDA-Public Use
  Company Number: US-ROCHE-1035732

PATIENT
  Sex: Female
  Weight: 70 kg

DRUGS (13)
  1. TAGAMET [Concomitant]
     Active Substance: CIMETIDINE
     Route: 042
  2. XANAX [Concomitant]
     Active Substance: ALPRAZOLAM
     Dosage: 1-2 TABLETS
     Route: 048
  3. LORAZEPAM. [Concomitant]
     Active Substance: LORAZEPAM
     Route: 065
  4. DECADRON [Concomitant]
     Active Substance: DEXAMETHASONE
     Route: 048
  5. ZOFRAN [Concomitant]
     Active Substance: ONDANSETRON HYDROCHLORIDE
     Route: 042
  6. DURAGESIC [Concomitant]
     Active Substance: FENTANYL
     Route: 065
  7. CARBOPLATIN. [Concomitant]
     Active Substance: CARBOPLATIN
  8. AVASTIN [Suspect]
     Active Substance: BEVACIZUMAB
     Indication: MALIGNANT RESPIRATORY TRACT NEOPLASM
     Route: 042
     Dates: start: 20070706
  9. ALIMTA [Concomitant]
     Active Substance: PEMETREXED DISODIUM
  10. AVASTIN [Suspect]
     Active Substance: BEVACIZUMAB
     Indication: NON-SMALL CELL LUNG CANCER
  11. TAXOTERE [Concomitant]
     Active Substance: DOCETAXEL
  12. PREVACID [Concomitant]
     Active Substance: LANSOPRAZOLE
     Route: 065
  13. XANAX [Concomitant]
     Active Substance: ALPRAZOLAM
     Dosage: AS NEEDED
     Route: 048

REACTIONS (7)
  - Abdominal pain upper [Unknown]
  - Death [Fatal]
  - Pain [Unknown]
  - Anxiety [Unknown]
  - Vomiting [Unknown]
  - Nausea [Unknown]
  - Decreased appetite [Unknown]
